FAERS Safety Report 18262886 (Version 1)
Quarter: 2020Q3

REPORT INFORMATION
  Report Type: Spontaneous
  Country: US (occurrence: US)
  Receive Date: 20200914
  Receipt Date: 20200914
  Transmission Date: 20201103
  Serious: Yes (Other)
  Sender: FDA-Public Use
  Company Number: US-PFIZER INC-2020354219

PATIENT
  Age: 53 Year
  Sex: Male

DRUGS (1)
  1. INLYTA [Suspect]
     Active Substance: AXITINIB
     Dosage: 5 MG
     Dates: start: 20200629

REACTIONS (4)
  - Candida infection [Recovered/Resolved]
  - Rash [Recovered/Resolved]
  - Hypertension [Unknown]
  - Burn oral cavity [Recovered/Resolved]

NARRATIVE: CASE EVENT DATE: 2020
